FAERS Safety Report 6815276-0 (Version None)
Quarter: 2010Q3

REPORT INFORMATION
  Report Type: 
  Country: None (occurrence: None)
  Receive Date: 20100702
  Receipt Date: 20100621
  Transmission Date: 20110219
  Serious: Yes (Hospitalization)
  Sender: FDA-Public Use
  Company Number: PHHY2010DE40493

PATIENT
  Sex: Male

DRUGS (5)
  1. CRANOC 80 RETARD [Suspect]
     Indication: HYPERCHOLESTEROLAEMIA
     Dosage: 80 MG/DAY
     Route: 048
     Dates: start: 20020101, end: 20100101
  2. ACERBON ^ICI^ [Concomitant]
  3. METOPROLOL TARTRATE [Concomitant]
  4. EZETROL [Concomitant]
  5. ASS ^CT-ARZNEIMITTEL^ [Concomitant]

REACTIONS (1)
  - DERMATITIS [None]
